FAERS Safety Report 15585792 (Version 2)
Quarter: 2018Q4

REPORT INFORMATION
  Report Type: Spontaneous
  Country: FI (occurrence: FI)
  Receive Date: 20181105
  Receipt Date: 20181116
  Transmission Date: 20190205
  Serious: Yes (Other)
  Sender: FDA-Public Use
  Company Number: FI-UCBSA-2018048773

PATIENT
  Sex: Female

DRUGS (10)
  1. ETHOSUXIMIDE. [Suspect]
     Active Substance: ETHOSUXIMIDE
     Indication: MYOCLONIC EPILEPSY
     Dosage: UNK
  2. TOPIRAMATE. [Suspect]
     Active Substance: TOPIRAMATE
     Indication: MYOCLONIC EPILEPSY
     Dosage: UNK
  3. VIGABATRIN. [Suspect]
     Active Substance: VIGABATRIN
     Indication: MYOCLONIC EPILEPSY
     Dosage: UNK
  4. ACETAZOLAMIDE. [Suspect]
     Active Substance: ACETAZOLAMIDE
     Indication: MYOCLONIC EPILEPSY
     Dosage: UNK
  5. VALPROATE [Suspect]
     Active Substance: VALPROIC ACID
     Indication: MYOCLONIC EPILEPSY
     Dosage: UNK
  6. CLONAZEPAM. [Suspect]
     Active Substance: CLONAZEPAM
     Indication: MYOCLONIC EPILEPSY
     Dosage: UNK
  7. CARBAMAZEPINE. [Suspect]
     Active Substance: CARBAMAZEPINE
     Indication: MYOCLONIC EPILEPSY
     Dosage: UNK
  8. LEVETIRACETAM. [Suspect]
     Active Substance: LEVETIRACETAM
     Indication: MYOCLONIC EPILEPSY
     Dosage: UNKNOWN DOSE
  9. NITRAZEPAM [Suspect]
     Active Substance: NITRAZEPAM
     Indication: MYOCLONIC EPILEPSY
     Dosage: UNK
  10. LAMOTRIGINE. [Suspect]
     Active Substance: LAMOTRIGINE
     Indication: MYOCLONIC EPILEPSY
     Dosage: UNK

REACTIONS (6)
  - Intellectual disability [Unknown]
  - Psychotic disorder [Unknown]
  - Aggression [Unknown]
  - Disturbance in attention [Unknown]
  - Visual impairment [Unknown]
  - Multiple-drug resistance [Unknown]
